FAERS Safety Report 25823851 (Version 1)
Quarter: 2025Q3

REPORT INFORMATION
  Report Type: Spontaneous
  Country: US (occurrence: US)
  Receive Date: 20250919
  Receipt Date: 20250919
  Transmission Date: 20251020
  Serious: No
  Sender: ANI
  Company Number: US-ANIPHARMA-2025-US-022425

PATIENT
  Sex: Female

DRUGS (1)
  1. CORTICOTROPIN [Suspect]
     Active Substance: CORTICOTROPIN
     Indication: Product used for unknown indication
     Route: 058
     Dates: end: 20250411

REACTIONS (5)
  - Muscular weakness [Recovering/Resolving]
  - Fall [Unknown]
  - Weight increased [Recovering/Resolving]
  - Fatigue [Recovering/Resolving]
  - Blood pressure increased [Recovering/Resolving]
